FAERS Safety Report 7310353-2 (Version None)
Quarter: 2011Q1

REPORT INFORMATION
  Report Type: 
  Country: None (occurrence: None)
  Receive Date: 20110214
  Receipt Date: 20110203
  Transmission Date: 20110831
  Serious: Yes (Other)
  Sender: FDA-Public Use
  Company Number: MPS1-1000389

PATIENT
  Age: 5 Year
  Sex: Male
  Weight: 12 kg

DRUGS (3)
  1. ALDURAZYME [Suspect]
     Indication: MUCOPOLYSACCHARIDOSIS I
     Dosage: 0.54 MG/KG, 1X/W, INTRAVENOUS
     Route: 042
     Dates: start: 20100714
  2. BRONCHODILATORS NOS (BRONCHOLIDATORS NOS) [Concomitant]
  3. INHALED CORTICOSTEROIDS (INHALED CORTICOSTEROIDS) [Concomitant]

REACTIONS (3)
  - DYSPNOEA [None]
  - CYANOSIS [None]
  - TACHYPNOEA [None]
